FAERS Safety Report 7299992-5 (Version None)
Quarter: 2011Q1

REPORT INFORMATION
  Report Type: 
  Country: None (occurrence: None)
  Receive Date: 20110208
  Receipt Date: 20110124
  Transmission Date: 20110831
  Serious: Yes (Other)
  Sender: FDA-Public Use
  Company Number: AUR-APL-2010-01278

PATIENT
  Age: 35 Year
  Sex: Male

DRUGS (10)
  1. RITONAVIR [Suspect]
     Indication: LENTIVIRUS TEST POSITIVE
  2. TRUVADA [Suspect]
     Indication: LENTIVIRUS TEST POSITIVE
  3. LEVETIRACETAM [Suspect]
     Indication: PARTIAL SEIZURES
     Dosage: 500 MG,BID,ORAL
     Route: 048
  4. LEVETIRACETAM [Suspect]
     Indication: PARTIAL SEIZURES
     Dosage: 1500 MG, BID, ORAL;
  5. DAPSONE [Suspect]
  6. CLARITHROMYCIN [Suspect]
  7. CLONAZEPAM [Suspect]
  8. ATAZANAVIR [Suspect]
     Indication: LENTIVIRUS TEST POSITIVE
  9. SERTRALINE HYDROCHLORIDE [Suspect]
  10. RIFABUTIN [Suspect]
     Indication: MYCOBACTERIUM AVIUM COMPLEX INFECTION

REACTIONS (15)
  - PETECHIAE [None]
  - BLOOD ALBUMIN DECREASED [None]
  - MELAENA [None]
  - PANCYTOPENIA [None]
  - THROMBOCYTOPENIA [None]
  - POLYCHROMASIA [None]
  - CD4 LYMPHOCYTES DECREASED [None]
  - HAEMATURIA [None]
  - PLATELET DISORDER [None]
  - BLOOD HIV RNA INCREASED [None]
  - BLOOD ALKALINE PHOSPHATASE INCREASED [None]
  - ANISOCYTOSIS [None]
  - POIKILOCYTOSIS [None]
  - BLOOD BILIRUBIN INCREASED [None]
  - ASPARTATE AMINOTRANSFERASE INCREASED [None]
